FAERS Safety Report 8099772-7 (Version None)
Quarter: 2012Q1

REPORT INFORMATION
  Report Type: 
  Country: None (occurrence: None)
  Receive Date: 20120129
  Receipt Date: 20110916
  Transmission Date: 20120608
  Serious: No
  Sender: FDA-Public Use
  Company Number: US-ABBOTT-11P-163-0855596-00

PATIENT
  Sex: Male
  Weight: 120.31 kg

DRUGS (1)
  1. HUMIRA [Suspect]
     Indication: PSORIASIS
     Dates: start: 20100101

REACTIONS (6)
  - ARTHRALGIA [None]
  - PRODUCTIVE COUGH [None]
  - ARTHRITIS [None]
  - JOINT CREPITATION [None]
  - COUGH [None]
  - DYSPNOEA [None]
